FAERS Safety Report 5971719-6 (Version None)
Quarter: 2008Q4

REPORT INFORMATION
  Report Type: 
  Country: None (occurrence: None)
  Receive Date: 20081201
  Receipt Date: 20081121
  Transmission Date: 20090506
  Serious: Yes (Life-Threatening, Hospitalization)
  Sender: FDA-Public Use
  Company Number: JP-PFIZER INC-2008086081

PATIENT
  Sex: Male

DRUGS (11)
  1. ZYVOX [Suspect]
     Indication: ARTHRITIS
     Route: 042
     Dates: start: 20081008, end: 20081009
  2. TARGOCID [Concomitant]
     Dates: start: 20081004, end: 20081008
  3. MICARDIS [Concomitant]
  4. ARTIST [Concomitant]
     Dates: start: 20080926, end: 20081009
  5. DIGOXIN [Concomitant]
     Dates: start: 20080925
  6. ASPENON [Concomitant]
     Dates: start: 20080926
  7. TRYPTANOL [Concomitant]
  8. VESICARE [Concomitant]
  9. TRIAZOLAM [Concomitant]
  10. VASOLAN [Concomitant]
     Route: 048
     Dates: start: 20081006, end: 20081016
  11. LASIX [Concomitant]
     Route: 048
     Dates: start: 20080925, end: 20080930

REACTIONS (1)
  - ELECTROCARDIOGRAM QT PROLONGED [None]
